FAERS Safety Report 5289637-8 (Version None)
Quarter: 2007Q2

REPORT INFORMATION
  Report Type: 
  Country: None (occurrence: None)
  Receive Date: 20070406
  Receipt Date: 20070327
  Transmission Date: 20071010
  Serious: Yes (Hospitalization)
  Sender: FDA-Public Use
  Company Number: 2007CG00442

PATIENT
  Age: 80 Year
  Sex: Female

DRUGS (5)
  1. ARIMIDEX [Suspect]
     Indication: BREAST CANCER FEMALE
     Route: 048
     Dates: start: 20030101, end: 20070204
  2. NOLVADEX [Concomitant]
     Indication: BREAST CANCER FEMALE
     Route: 048
     Dates: start: 19970401, end: 20030101
  3. CELECTOL [Concomitant]
     Indication: HYPERTENSION
  4. XANAX [Concomitant]
  5. IMOVANE [Concomitant]

REACTIONS (2)
  - HAEMORRHAGIC STROKE [None]
  - HYPERTENSIVE CRISIS [None]
